FAERS Safety Report 24959158 (Version 2)
Quarter: 2025Q1

REPORT INFORMATION
  Report Type: Report from Study
  Country: US (occurrence: US)
  Receive Date: 20250212
  Receipt Date: 20250224
  Transmission Date: 20250408
  Serious: Yes (Hospitalization)
  Sender: SANOFI AVENTIS
  Company Number: US-SA-2025SA040623

PATIENT
  Age: 73 Year
  Sex: Male
  Weight: 187.8 kg

DRUGS (22)
  1. DOCETAXEL [Suspect]
     Active Substance: DOCETAXEL
     Indication: Adenocarcinoma
     Dosage: 75 MG/M2, EVERY 3 WEEKS
     Dates: start: 20241114, end: 20241114
  2. DOCETAXEL [Suspect]
     Active Substance: DOCETAXEL
     Dosage: 75 MG/M2, EVERY 3 WEEKS
     Dates: start: 20241205, end: 20241205
  3. LEUPROLIDE ACETATE [Concomitant]
     Active Substance: LEUPROLIDE ACETATE
     Dates: start: 20210630
  4. ZOMETA [Concomitant]
     Active Substance: ZOLEDRONIC ACID
     Dates: start: 20231212
  5. IBUPROFEN [Concomitant]
     Active Substance: IBUPROFEN
     Dates: start: 202106
  6. ZOLOFT [Concomitant]
     Active Substance: SERTRALINE HYDROCHLORIDE
     Dates: start: 20230823
  7. AMYLASE [Concomitant]
     Active Substance: AMYLASE
     Dates: start: 2021
  8. PROTEASE [Concomitant]
     Active Substance: PROTEASE
     Dates: start: 2021
  9. LIPASE [Concomitant]
     Active Substance: LIPASE
     Dates: start: 2021
  10. CELLULASE [Concomitant]
     Active Substance: CELLULASE
     Dates: start: 2021
  11. MAGNESIUM [Concomitant]
     Active Substance: MAGNESIUM
     Dates: start: 202303
  12. MELATONIN [Concomitant]
     Active Substance: MELATONIN
     Dates: start: 2023
  13. TRIAMCINOLONE ACETONIDE [Concomitant]
     Active Substance: TRIAMCINOLONE ACETONIDE
     Dates: start: 20240403
  14. TRIAMCINOLONE [Concomitant]
     Active Substance: TRIAMCINOLONE
     Dates: start: 20241108
  15. Dulcolax [Concomitant]
     Dates: start: 20241115
  16. NEULASTA [Concomitant]
     Active Substance: PEGFILGRASTIM
     Dates: start: 20241115
  17. ROPIVACAINE [Concomitant]
     Active Substance: ROPIVACAINE
     Dates: start: 20240403
  18. VITAMINS [Concomitant]
     Active Substance: VITAMINS
     Dates: start: 20250101, end: 20250123
  19. Omegagenics epa dha [Concomitant]
     Dates: start: 20250101, end: 20250123
  20. VITAMIN B COMPLEX [Concomitant]
     Active Substance: CYANOCOBALAMIN\DEXPANTHENOL\NIACINAMIDE\PYRIDOXINE HYDROCHLORIDE\RIBOFLAVIN 5^-PHOSPHATE SODIUM\THIA
     Dates: start: 20250101, end: 20250123
  21. ALGAE NOS [Concomitant]
  22. FENBENDAZOLE [Concomitant]
     Active Substance: FENBENDAZOLE
     Dates: start: 202412, end: 202501

REACTIONS (4)
  - Activated partial thromboplastin time prolonged [Recovered/Resolved]
  - Gamma-glutamyltransferase increased [Not Recovered/Not Resolved]
  - Alanine aminotransferase increased [Recovering/Resolving]
  - Aspartate aminotransferase increased [Recovering/Resolving]

NARRATIVE: CASE EVENT DATE: 20250122
